FAERS Safety Report 9133333 (Version 2)
Quarter: 2013Q2

REPORT INFORMATION
  Report Type: Spontaneous
  Country: US (occurrence: US)
  Receive Date: 20130125
  Receipt Date: 20130506
  Transmission Date: 20140414
  Serious: Yes (Hospitalization)
  Sender: FDA-Public Use
  Company Number: US-009507513-1301USA011166

PATIENT
  Age: 47 Year
  Sex: 0

DRUGS (2)
  1. CLARITIN [Suspect]
     Indication: SINUS DISORDER
     Dosage: UNK
     Route: 048
  2. CLARITIN [Suspect]
     Indication: HYPERSENSITIVITY

REACTIONS (4)
  - Pneumonia [Recovering/Resolving]
  - Malaise [Recovering/Resolving]
  - Rhinorrhoea [Recovering/Resolving]
  - Cough [Recovering/Resolving]
